FAERS Safety Report 21096542 (Version 1)
Quarter: 2022Q3

REPORT INFORMATION
  Report Type: 
  Country: None (occurrence: ES)
  Receive Date: 20220718
  Receipt Date: 20220718
  Transmission Date: 20221027
  Serious: Yes (Hospitalization, Other)
  Sender: FDA-Public Use
  Company Number: None

PATIENT
  Age: 78 None
  Sex: Male

DRUGS (1)
  1. DORZOLAMIDE HYDROCHLORIDE\TIMOLOL MALEATE [Suspect]
     Active Substance: DORZOLAMIDE HYDROCHLORIDE\TIMOLOL MALEATE

REACTIONS (8)
  - Purulent discharge [Recovered/Resolved]
  - Eye pain [Recovered/Resolved]
  - Blindness [Recovered/Resolved]
  - Conjunctivitis [Recovered/Resolved]
  - Intraocular pressure decreased [Recovered/Resolved]
  - Retinal cyst [Recovered/Resolved]
  - Chorioretinal folds [None]
  - Corneal oedema [Recovered/Resolved]
